FAERS Safety Report 5029490-0 (Version None)
Quarter: 2006Q2

REPORT INFORMATION
  Report Type: 
  Country: None (occurrence: None)
  Receive Date: 20060504
  Receipt Date: 20051205
  Transmission Date: 20061013
  Serious: No
  Sender: FDA-Public Use
  Company Number: 200512843BWH

PATIENT
  Age: 65 Year
  Sex: Male

DRUGS (2)
  1. LEVITRA [Suspect]
     Indication: ERECTILE DYSFUNCTION
     Dosage: SEE IMAGE
     Route: 048
     Dates: start: 20051202
  2. METFORMIN [Concomitant]

REACTIONS (1)
  - SPONTANEOUS PENILE ERECTION [None]
